FAERS Safety Report 8265493-0 (Version None)
Quarter: 2012Q2

REPORT INFORMATION
  Report Type: 
  Country: None (occurrence: None)
  Receive Date: 20120406
  Receipt Date: 20120402
  Transmission Date: 20120825
  Serious: Yes (Other)
  Sender: FDA-Public Use
  Company Number: JP-PFIZER INC-2012083332

PATIENT
  Age: 64 Year
  Sex: Female

DRUGS (1)
  1. ZYVOX [Suspect]
     Indication: ENDOCARDITIS
     Dosage: 1200 MG,
     Route: 041
     Dates: start: 20110923, end: 20111020

REACTIONS (1)
  - INTERNATIONAL NORMALISED RATIO INCREASED [None]
